FAERS Safety Report 9797667 (Version 1)
Quarter: 2014Q1

REPORT INFORMATION
  Report Type: Spontaneous
  Country: US (occurrence: US)
  Receive Date: 20140106
  Receipt Date: 20140106
  Transmission Date: 20141002
  Serious: No
  Sender: FDA-Public Use
  Company Number: US-PFIZER INC-2014000736

PATIENT
  Age: 58 Year
  Sex: Female

DRUGS (9)
  1. XELJANZ [Suspect]
     Dosage: 5 MG, 2X/DAY
     Route: 048
     Dates: start: 20131204, end: 20131231
  2. METHOTREXATE [Concomitant]
     Dosage: UNKNOWN
  3. SULFASALAZINE [Concomitant]
     Dosage: UNKNOWN
  4. PLAQUENIL [Concomitant]
     Dosage: UNKNOWN
  5. FOSAMAX [Concomitant]
  6. FOLIC ACID [Concomitant]
     Dosage: UNKNOWN
  7. VITAMIN D [Concomitant]
     Dosage: UNKNOWN
  8. SIMVASTATIN [Concomitant]
     Dosage: UNKNOWN
  9. BACTRIM [Concomitant]
     Dosage: UNKNOWN

REACTIONS (2)
  - Malaise [Unknown]
  - Infection [Unknown]
